FAERS Safety Report 9311697 (Version 1)
Quarter: 2013Q1

REPORT INFORMATION
  Report Type: Spontaneous
  Country: US (occurrence: None)
  Receive Date: 20130116
  Receipt Date: 20130116
  Transmission Date: 20140127
  Serious: Yes (Death, Other)
  Sender: FDA-Public Use
  Company Number: TPA2012A08450

PATIENT
  Age: 76 Year
  Sex: Male
  Weight: 48.54 kg

DRUGS (3)
  1. ACTOS (PIOGLITAZONE HYDROCHLORIDE) [Suspect]
     Indication: TYPE 2 DIABETES MELLITUS
     Dates: start: 200403, end: 2007
  2. METFORMIN (METFORMIN) [Concomitant]
  3. GLUCOPHAGE (METFORMIN HYDROCHLORIDE) [Concomitant]

REACTIONS (3)
  - Bladder cancer [None]
  - Metastases to lung [None]
  - Metastases to central nervous system [None]
